FAERS Safety Report 7439665-9 (Version None)
Quarter: 2011Q2

REPORT INFORMATION
  Report Type: 
  Country: None (occurrence: None)
  Receive Date: 20110427
  Receipt Date: 20110412
  Transmission Date: 20111010
  Serious: Yes (Other)
  Sender: FDA-Public Use
  Company Number: PHHY2009SE47937

PATIENT
  Sex: Female

DRUGS (9)
  1. FURIX [Concomitant]
     Dosage: 40 MG, UNK
  2. CALCICHEW D3 [Concomitant]
  3. TRACLEER [Concomitant]
     Dosage: 250 MG, UNK
  4. PREDNISOLONE [Concomitant]
     Dosage: 7.5 MG, UNK
  5. DUROFERON [Concomitant]
  6. WARAN [Concomitant]
  7. ACLASTA [Suspect]
     Indication: OSTEOPOROSIS
     Dosage: 5 MG,
     Dates: start: 20091009
  8. PANOCOD [Concomitant]
  9. SPIRONOLAKTON [Concomitant]

REACTIONS (9)
  - INFLUENZA LIKE ILLNESS [None]
  - OEDEMA [None]
  - STRESS FRACTURE [None]
  - MYALGIA [None]
  - PAIN IN EXTREMITY [None]
  - GOUT [None]
  - ARTHRALGIA [None]
  - OEDEMA PERIPHERAL [None]
  - ARTHRITIS [None]
